FAERS Safety Report 15222937 (Version 1)
Quarter: 2018Q3

REPORT INFORMATION
  Report Type: Spontaneous
  Country: US (occurrence: US)
  Receive Date: 20180705
  Receipt Date: 20180705
  Transmission Date: 20181010
  Serious: No
  Sender: FDA-Public Use
  Company Number: None

PATIENT
  Age: 46 Year
  Sex: Female
  Weight: 46.8 kg

DRUGS (4)
  1. TYLENOL [Concomitant]
     Active Substance: ACETAMINOPHEN
  2. CALCIUM+D3 [Concomitant]
  3. VOTRIENT [Suspect]
     Active Substance: PAZOPANIB HYDROCHLORIDE
     Route: 048
  4. MULTIVITAMIN [Concomitant]
     Active Substance: VITAMINS

REACTIONS (1)
  - Disease progression [None]
